FAERS Safety Report 20631733 (Version 1)
Quarter: 2022Q1

REPORT INFORMATION
  Report Type: Spontaneous
  Country: HU (occurrence: None)
  Receive Date: 20220324
  Receipt Date: 20220324
  Transmission Date: 20220423
  Serious: Yes (Hospitalization)
  Sender: FDA-Public Use
  Company Number: HU-UCBSA-2022013670

PATIENT
  Age: 66 Year
  Sex: Male
  Weight: 101 kg

DRUGS (10)
  1. SODIUM CHLORIDE [Suspect]
     Active Substance: SODIUM CHLORIDE
     Indication: Clostridium difficile immunisation
     Dosage: UNK
     Route: 030
     Dates: start: 20180125
  2. LEVETIRACETAM [Suspect]
     Active Substance: LEVETIRACETAM
     Indication: Seizure prophylaxis
     Dosage: 1000 MILLIGRAM, 2X/DAY (BID)
     Route: 048
     Dates: start: 201712
  3. ASPIRIN [Concomitant]
     Active Substance: ASPIRIN
     Indication: Stenosis
     Dosage: UNK
     Route: 065
     Dates: start: 2017
  4. PANTOPRAZOLE SODIUM [Concomitant]
     Active Substance: PANTOPRAZOLE SODIUM
     Indication: Gastritis
     Dosage: UNK
     Route: 065
     Dates: start: 2009
  5. INDAPAMIDE\PERINDOPRIL ARGININE [Concomitant]
     Active Substance: INDAPAMIDE\PERINDOPRIL ARGININE
     Indication: Hypertension
     Dosage: UNK
     Route: 065
     Dates: start: 2015
  6. DOXAZOSIN [Concomitant]
     Active Substance: DOXAZOSIN MESYLATE
     Indication: Hypertension
     Dosage: UNK
     Route: 065
     Dates: start: 2015
  7. ATORVASTATIN CALCIUM [Concomitant]
     Active Substance: ATORVASTATIN CALCIUM
     Indication: Hypertension
     Dosage: UNK
     Route: 065
     Dates: start: 2015
  8. METFORMIN [Concomitant]
     Active Substance: METFORMIN HYDROCHLORIDE
     Indication: Diabetes mellitus
     Dosage: UNK
     Route: 065
     Dates: start: 2014
  9. CARVEDILOL [Concomitant]
     Active Substance: CARVEDILOL
     Indication: Hypertension
     Dosage: UNK
     Route: 065
     Dates: start: 2015
  10. FENOTEROL HYDROBROMIDE\IPRATROPIUM BROMIDE [Concomitant]
     Active Substance: FENOTEROL HYDROBROMIDE\IPRATROPIUM BROMIDE
     Indication: Chronic obstructive pulmonary disease
     Dosage: UNK
     Route: 065
     Dates: start: 2006

REACTIONS (4)
  - Product use in unapproved indication [Unknown]
  - Generalised tonic-clonic seizure [Recovered/Resolved]
  - Loss of consciousness [Recovered/Resolved]
  - Treatment noncompliance [Unknown]

NARRATIVE: CASE EVENT DATE: 20171201
